FAERS Safety Report 7249449-2 (Version None)
Quarter: 2011Q1

REPORT INFORMATION
  Report Type: 
  Country: None (occurrence: None)
  Receive Date: 20110121
  Receipt Date: 20110121
  Transmission Date: 20110831
  Serious: Yes (Hospitalization)
  Sender: FDA-Public Use
  Company Number: None

PATIENT
  Age: 61 Year
  Sex: Male
  Weight: 122 kg

DRUGS (1)
  1. IMATINIB [Suspect]
     Indication: CHRONIC MYELOID LEUKAEMIA
     Dosage: 600 MG EVERY DAY PO
     Route: 048
     Dates: start: 20100201, end: 20101017

REACTIONS (5)
  - LEUKOCYTOCLASTIC VASCULITIS [None]
  - DYSPNOEA [None]
  - IDIOSYNCRATIC DRUG REACTION [None]
  - CHEST PAIN [None]
  - RENAL FAILURE [None]
